FAERS Safety Report 18419341 (Version 2)
Quarter: 2020Q4

REPORT INFORMATION
  Report Type: Spontaneous
  Country: DE (occurrence: DE)
  Receive Date: 20201023
  Receipt Date: 20201103
  Transmission Date: 20210114
  Serious: Yes (Other)
  Sender: FDA-Public Use
  Company Number: DE-TORRENT-00018772

PATIENT
  Age: 54 Year
  Sex: Female
  Weight: 85 kg

DRUGS (7)
  1. POTASSIUM BROMIDE DESITIN [Concomitant]
     Indication: PRODUCT USED FOR UNKNOWN INDICATION
     Dosage: UNKNOWN
  2. CLOPIDOGREL [Concomitant]
     Active Substance: CLOPIDOGREL BISULFATE
     Indication: TRANSIENT ISCHAEMIC ATTACK
     Dosage: IS NOT TAKEN AT THE MOMENT
  3. PETINUTIN [Concomitant]
     Active Substance: METHSUXIMIDE
     Indication: PRODUCT USED FOR UNKNOWN INDICATION
     Dosage: UNKNOWN
  4. LORATADIN [Concomitant]
     Active Substance: LORATADINE
     Indication: HYPERSENSITIVITY
     Dosage: AS NECESSARY
  5. VITAMIN D [Concomitant]
     Active Substance: VITAMIN D NOS
     Indication: PRODUCT USED FOR UNKNOWN INDICATION
     Dosage: UNKNOWN
  6. CARBAMAZEPINE. [Suspect]
     Active Substance: CARBAMAZEPINE
     Indication: EPILEPSY
     Dosage: 300S TWICE DAILY
     Route: 048
     Dates: start: 1995, end: 2020
  7. FOLIC ACID. [Concomitant]
     Active Substance: FOLIC ACID
     Indication: PRODUCT USED FOR UNKNOWN INDICATION
     Dosage: UNKNOWN

REACTIONS (14)
  - Blood sodium decreased [Not Recovered/Not Resolved]
  - Depression [Unknown]
  - Cardiovascular disorder [Unknown]
  - Hepatomegaly [Recovered/Resolved with Sequelae]
  - Metabolic disorder [Unknown]
  - Hypothalamo-pituitary disorder [Recovered/Resolved with Sequelae]
  - Cardiomegaly [Recovered/Resolved with Sequelae]
  - Fatigue [Recovered/Resolved]
  - Skin disorder [Unknown]
  - Renal impairment [Recovered/Resolved with Sequelae]
  - Thyroid function test abnormal [Recovered/Resolved with Sequelae]
  - Tooth disorder [Unknown]
  - Adrenal disorder [Recovered/Resolved with Sequelae]
  - Blood calcium decreased [Not Recovered/Not Resolved]

NARRATIVE: CASE EVENT DATE: 2005
